FAERS Safety Report 7500229-X (Version None)
Quarter: 2011Q2

REPORT INFORMATION
  Report Type: 
  Country: None (occurrence: None)
  Receive Date: 20110524
  Receipt Date: 20110510
  Transmission Date: 20111010
  Serious: Yes (Other)
  Sender: FDA-Public Use
  Company Number: BR-JNJFOC-20110505257

PATIENT
  Age: 41 Year
  Sex: Female

DRUGS (2)
  1. AMITRIL [Concomitant]
     Indication: DEPRESSION
     Route: 048
     Dates: start: 20080101
  2. REMICADE [Suspect]
     Indication: RHEUMATOID ARTHRITIS
     Route: 042
     Dates: start: 20080101

REACTIONS (2)
  - HERPES VIRUS INFECTION [None]
  - LIVER DISORDER [None]
